FAERS Safety Report 24591212 (Version 1)
Quarter: 2024Q4

REPORT INFORMATION
  Report Type: Spontaneous
  Country: US (occurrence: US)
  Receive Date: 20241108
  Receipt Date: 20241108
  Transmission Date: 20250114
  Serious: Yes (Hospitalization, Other)
  Sender: NOVITIUM PHARMA
  Company Number: US-NOVITIUMPHARMA-2024USNVP02489

PATIENT
  Age: 17 Year
  Sex: Female

DRUGS (6)
  1. PREDNISONE [Suspect]
     Active Substance: PREDNISONE
     Indication: Prophylaxis against transplant rejection
     Dosage: MAINTANENCE DOSE
  2. TACROLIMUS [Concomitant]
     Active Substance: TACROLIMUS
     Indication: Prophylaxis against transplant rejection
     Dosage: MAINTANENCE DOSE
  3. TACROLIMUS [Concomitant]
     Active Substance: TACROLIMUS
     Dosage: DOSES WERE REDUCED ON DAY 3
  4. EVEROLIMUS [Concomitant]
     Active Substance: EVEROLIMUS
     Indication: Prophylaxis against transplant rejection
     Dosage: DOSES WERE REDUCED ON DAY 3
  5. CEFTRIAXONE [Concomitant]
     Active Substance: CEFTRIAXONE
     Indication: Evidence based treatment
  6. ACETAMINOPHEN [Concomitant]
     Active Substance: ACETAMINOPHEN
     Indication: Product used for unknown indication

REACTIONS (7)
  - Hypoxia [Recovering/Resolving]
  - Adenovirus interstitial nephritis [Recovering/Resolving]
  - Myelosuppression [Recovering/Resolving]
  - Pneumonia viral [Recovering/Resolving]
  - Adenovirus infection [Recovering/Resolving]
  - Pleural effusion [Recovering/Resolving]
  - Transaminases increased [Recovering/Resolving]
